FAERS Safety Report 18314039 (Version 2)
Quarter: 2020Q3

REPORT INFORMATION
  Report Type: Spontaneous
  Country: CN (occurrence: CN)
  Receive Date: 20200925
  Receipt Date: 20200930
  Transmission Date: 20201103
  Serious: Yes (Life-Threatening, Hospitalization, Other)
  Sender: FDA-Public Use
  Company Number: NVSC2020CN260693

PATIENT
  Age: 65 Year
  Sex: Female

DRUGS (1)
  1. DIOVAN [Suspect]
     Active Substance: VALSARTAN
     Indication: PRODUCT USED FOR UNKNOWN INDICATION
     Dosage: 1 DF, QD (ONE PILL IN THE MORNING)
     Route: 048

REACTIONS (4)
  - Pain of skin [Unknown]
  - Asphyxia [Unknown]
  - Dyspnoea [Not Recovered/Not Resolved]
  - Cough [Unknown]
